FAERS Safety Report 10080575 (Version 1)
Quarter: 2014Q2

REPORT INFORMATION
  Report Type: Spontaneous
  Country: US (occurrence: US)
  Receive Date: 20140416
  Receipt Date: 20140416
  Transmission Date: 20141212
  Serious: Yes (Hospitalization, Other)
  Sender: FDA-Public Use
  Company Number: US-UCBSA-117641

PATIENT
  Sex: Male

DRUGS (6)
  1. CIMZIA [Suspect]
     Dosage: UNKNOWN DOSE
  2. HUMIRA [Suspect]
     Dosage: UNKNOWN DOSE
  3. 6-MP [Suspect]
     Dosage: UNKNOWN DOSE
  4. REMICADE [Suspect]
     Dosage: UNKNOWN DOSE
  5. ENTOCORT [Suspect]
     Dosage: UNKNOWN DOSE
  6. PREDNISONE [Suspect]
     Dosage: MULTIPLE ROUNDS OF UNKNOWN DOSE

REACTIONS (8)
  - Intestinal ulcer [Unknown]
  - Abdominal adhesions [Unknown]
  - Intestinal stenosis [Unknown]
  - Bone disorder [Recovering/Resolving]
  - Arthropathy [Recovering/Resolving]
  - Skin disorder [Recovering/Resolving]
  - Cardiac disorder [Recovering/Resolving]
  - Pain [Recovered/Resolved]
